FAERS Safety Report 21412113 (Version 1)
Quarter: 2022Q4

REPORT INFORMATION
  Report Type: Spontaneous
  Country: US (occurrence: None)
  Receive Date: 20221004
  Receipt Date: 20221004
  Transmission Date: 20230113
  Serious: Yes (Hospitalization)
  Sender: FDA-Public Use
  Company Number: None

PATIENT
  Age: 81 Year
  Sex: Female

DRUGS (1)
  1. ICATIBANT ACETATE [Suspect]
     Active Substance: ICATIBANT ACETATE
     Indication: Immunodeficiency
     Dosage: FREQUENCY : AS NEEDED;?
     Route: 058
     Dates: start: 202208

REACTIONS (1)
  - Infection [None]

NARRATIVE: CASE EVENT DATE: 20220925
